FAERS Safety Report 6459889-7 (Version None)
Quarter: 2009Q4

REPORT INFORMATION
  Report Type: 
  Country: None (occurrence: None)
  Receive Date: 20091128
  Receipt Date: 20091113
  Transmission Date: 20100525
  Serious: Yes (Hospitalization)
  Sender: FDA-Public Use
  Company Number: FR-ALLERGAN-0916345US

PATIENT
  Age: 78 Year
  Sex: Female

DRUGS (6)
  1. TROSPIUM CHLORIDE [Suspect]
     Indication: DRUG USE FOR UNKNOWN INDICATION
     Dosage: 2 X 1 DF
     Dates: start: 20090703, end: 20091010
  2. FLECAINIDE ACETATE [Concomitant]
     Dosage: UNK
     Dates: start: 20090701
  3. SPIRONOLACTONE [Concomitant]
     Dosage: UNK
     Dates: start: 20090701
  4. TRIATEC [Concomitant]
     Dosage: UNK
     Dates: start: 20090701
  5. GLUCOPHAGE [Concomitant]
     Dosage: UNK
     Dates: start: 20090701
  6. KARDEGIC [Concomitant]
     Dosage: UNK
     Dates: start: 20090701

REACTIONS (4)
  - ABDOMINAL PAIN LOWER [None]
  - BACK PAIN [None]
  - URINARY RETENTION [None]
  - VOMITING [None]
